FAERS Safety Report 13503937 (Version 1)
Quarter: 2017Q2

REPORT INFORMATION
  Report Type: Spontaneous
  Country: US (occurrence: US)
  Receive Date: 20170502
  Receipt Date: 20170502
  Transmission Date: 20170830
  Serious: No
  Sender: FDA-Public Use
  Company Number: US-AKRIMAX-TIR-2017-0364

PATIENT
  Sex: Female

DRUGS (7)
  1. TIROSINT [Suspect]
     Active Substance: LEVOTHYROXINE SODIUM
     Dosage: 100MCG ONE CAPSULE 6 DAYS PER WEEK AND 125MCG ONE CAPSULE 1 DAY PER WEEK
     Route: 048
     Dates: start: 201702
  2. TIROSINT [Suspect]
     Active Substance: LEVOTHYROXINE SODIUM
     Dosage: 100MCG ONE CAPSULE 6 DAYS PER WEEK AND 125MCG ONE CAPSULE 1 DAY PER WEEK
     Route: 048
     Dates: start: 201702
  3. TIROSINT [Suspect]
     Active Substance: LEVOTHYROXINE SODIUM
     Indication: HYPOTHYROIDISM
     Dosage: 125MCG ONE CAPSULE 6 DAYS PER WEEK
     Route: 048
     Dates: start: 201701, end: 201702
  4. TIROSINT [Suspect]
     Active Substance: LEVOTHYROXINE SODIUM
     Dosage: 100MCG ONE CAPSULE 3 DAYS PER WEEK AND 112MCG ONE CAPSULE 4 DAYS PER WEEK
     Route: 048
  5. SLOW RELEASE T3 [Suspect]
     Active Substance: LIOTHYRONINE SODIUM
     Indication: PRODUCT USED FOR UNKNOWN INDICATION
     Dates: start: 201702
  6. TIROSINT [Suspect]
     Active Substance: LEVOTHYROXINE SODIUM
     Indication: HYPOTHYROIDISM
     Dosage: 100MCG ONE CAPSULE DAILY
     Route: 048
     Dates: start: 201702, end: 201702
  7. TIROSINT [Suspect]
     Active Substance: LEVOTHYROXINE SODIUM
     Indication: HYPOTHYROIDISM
     Dosage: 100MCG ONE CAPSULE 3 DAYS PER WEEK AND 112MCG ONE CAPSULE 4 DAYS PER WEEK
     Route: 048

REACTIONS (5)
  - Depressed mood [Unknown]
  - Neck pain [Unknown]
  - Ocular discomfort [Unknown]
  - Eye pain [Unknown]
  - Dizziness [Unknown]

NARRATIVE: CASE EVENT DATE: 2017
